FAERS Safety Report 7906601-8 (Version None)
Quarter: 2011Q4

REPORT INFORMATION
  Report Type: 
  Country: None (occurrence: None)
  Receive Date: 20111109
  Receipt Date: 20111109
  Transmission Date: 20120403
  Serious: Yes (Other)
  Sender: FDA-Public Use
  Company Number: None

PATIENT
  Age: 80 Year
  Sex: Male
  Weight: 98.8 kg

DRUGS (1)
  1. FEBUXOSTAT [Suspect]
     Indication: GOUT
     Dosage: 40 MG EVERY DAY PO
     Route: 048
     Dates: start: 20110724, end: 20110810

REACTIONS (4)
  - FATIGUE [None]
  - FEELING ABNORMAL [None]
  - URTICARIA [None]
  - PRURITUS [None]
